FAERS Safety Report 19112533 (Version 2)
Quarter: 2021Q2

REPORT INFORMATION
  Report Type: Other
  Country: US (occurrence: US)
  Receive Date: 20210408
  Receipt Date: 20210420
  Transmission Date: 20210717
  Serious: Yes (Other)
  Sender: FDA-Public Use
  Company Number: US-ROCHE-2737347

PATIENT
  Sex: Male

DRUGS (1)
  1. OCREVUS [Suspect]
     Active Substance: OCRELIZUMAB
     Indication: RELAPSING-REMITTING MULTIPLE SCLEROSIS
     Dosage: PRESCRIBED WITH 300 MG ON DAY 1, 300 MG ON DAY 15 THEN 600 MG 6 MONTHS POST FIRST INFUSION AND EVERY
     Route: 065

REACTIONS (2)
  - Off label use [Unknown]
  - Kidney infection [Not Recovered/Not Resolved]
